FAERS Safety Report 8087879-X (Version None)
Quarter: 2012Q1

REPORT INFORMATION
  Report Type: 
  Country: None (occurrence: None)
  Receive Date: 20120128
  Receipt Date: 20110407
  Transmission Date: 20120608
  Serious: No
  Sender: FDA-Public Use
  Company Number: US-ABBOTT-11P-163-0718064-00

PATIENT
  Sex: Female
  Weight: 53.572 kg

DRUGS (1)
  1. HUMIRA [Suspect]
     Indication: CROHN'S DISEASE
     Route: 058
     Dates: start: 20091101, end: 20110318

REACTIONS (11)
  - NASOPHARYNGITIS [None]
  - DIARRHOEA [None]
  - VOMITING [None]
  - DECREASED APPETITE [None]
  - FALL [None]
  - INJURY [None]
  - CROHN'S DISEASE [None]
  - INFLUENZA [None]
  - LOSS OF CONSCIOUSNESS [None]
  - PYREXIA [None]
  - ARTHRALGIA [None]
